FAERS Safety Report 6272747-6 (Version None)
Quarter: 2009Q3

REPORT INFORMATION
  Report Type: 
  Country: None (occurrence: None)
  Receive Date: 20090716
  Receipt Date: 20090716
  Transmission Date: 20100115
  Serious: Yes (Other)
  Sender: FDA-Public Use
  Company Number: None

PATIENT
  Sex: Female
  Weight: 69.8539 kg

DRUGS (1)
  1. ACTONEL [Suspect]
     Indication: OSTEOPOROSIS
     Dosage: 25 MG 1 TABET WKLY BY MOUTH
     Route: 048

REACTIONS (3)
  - MYALGIA [None]
  - TOOTHACHE [None]
  - URINARY INCONTINENCE [None]
